FAERS Safety Report 4276258-9 (Version None)
Quarter: 2004Q1

REPORT INFORMATION
  Report Type: 
  Country: None (occurrence: None)
  Receive Date: 20040121
  Receipt Date: 20020607
  Transmission Date: 20041129
  Serious: Yes (Hospitalization)
  Sender: FDA-Public Use
  Company Number: ES-ROCHE-315292

PATIENT
  Age: 58 Year
  Sex: Male
  Weight: 61 kg

DRUGS (19)
  1. DACLIZUMAB [Suspect]
     Route: 042
     Dates: start: 20020428, end: 20020428
  2. DACLIZUMAB [Suspect]
     Dosage: FOR 4 X DOSES
     Route: 042
     Dates: start: 20020513, end: 20020624
  3. MYCOPHENOLATE MOFETIL [Suspect]
     Route: 048
     Dates: start: 20020508, end: 20020530
  4. MYCOPHENOLATE MOFETIL [Suspect]
     Route: 048
     Dates: start: 20020720
  5. NEORAL [Suspect]
     Route: 065
     Dates: start: 20020513, end: 20020513
  6. NEORAL [Suspect]
     Route: 065
     Dates: start: 20020514
  7. NEORAL [Suspect]
     Route: 065
     Dates: start: 20020528
  8. PREDNISONE [Suspect]
     Route: 065
     Dates: start: 20020430, end: 20020513
  9. PREDNISONE [Suspect]
     Route: 065
     Dates: start: 20020514, end: 20020616
  10. PREDNISONE [Suspect]
     Route: 065
     Dates: start: 20020618
  11. OMEPRAZOLE [Concomitant]
     Dates: start: 20020503
  12. DOXAZOSIN MESYLATE [Concomitant]
     Dates: start: 20020503
  13. ATORVASTATINA [Concomitant]
     Dates: start: 20020513
  14. CARVEDILOL [Concomitant]
     Dates: start: 20020513
  15. EPO [Concomitant]
     Dates: start: 20020513
  16. CALCITRIOL [Concomitant]
     Dates: start: 20020503
  17. SODIUM BICARBONATE IN PLASTIC CONTAINER [Concomitant]
     Dates: start: 20020503
  18. PHOSPHATE-SANDOZ [Concomitant]
     Dates: start: 20020503
  19. FERROUS SULFATE TAB [Concomitant]
     Dates: start: 20020503

REACTIONS (2)
  - CYTOMEGALOVIRUS INFECTION [None]
  - DIABETES MELLITUS [None]
